FAERS Safety Report 9717536 (Version 1)
Quarter: 2013Q4

REPORT INFORMATION
  Report Type: Spontaneous
  Country: US (occurrence: US)
  Receive Date: 20131127
  Receipt Date: 20131127
  Transmission Date: 20140711
  Serious: No
  Sender: FDA-Public Use
  Company Number: US-GILEAD-2009-0020846

PATIENT
  Sex: Female
  Weight: 47.63 kg

DRUGS (9)
  1. LETAIRIS [Suspect]
     Indication: PULMONARY ARTERIAL HYPERTENSION
     Route: 048
     Dates: start: 20080728
  2. COUMADIN [Concomitant]
  3. LESCOL XL [Concomitant]
  4. NEPHROCAPS [Concomitant]
  5. RENAGEL [Concomitant]
  6. PROTONIX [Concomitant]
  7. PROAMATINE [Concomitant]
  8. SYNTHROID [Concomitant]
  9. PERCOCET [Concomitant]

REACTIONS (1)
  - Abdominal pain upper [Unknown]
